FAERS Safety Report 8459793-9 (Version None)
Quarter: 2012Q2

REPORT INFORMATION
  Report Type: 
  Country: None (occurrence: None)
  Receive Date: 20120622
  Receipt Date: 20120620
  Transmission Date: 20120825
  Serious: Yes (Other)
  Sender: FDA-Public Use
  Company Number: US-TEVA-344424USA

PATIENT
  Age: 74 Year
  Sex: Female

DRUGS (6)
  1. ROFLUMILAST [Suspect]
     Indication: CHRONIC OBSTRUCTIVE PULMONARY DISEASE
     Dosage: 500 MICROGRAM;
     Route: 048
     Dates: start: 20120501
  2. CHOLESTYRAMINE [Concomitant]
     Indication: BLOOD CHOLESTEROL INCREASED
  3. TIOTROPIUM BROMIDE [Concomitant]
     Indication: CHRONIC OBSTRUCTIVE PULMONARY DISEASE
  4. ASPIRIN [Concomitant]
  5. FUROSEMIDE [Suspect]
     Indication: OEDEMA PERIPHERAL
     Dosage: 40 MILLIGRAM;
     Route: 048
     Dates: start: 20120521
  6. LOSARTAN POTASSIUM [Concomitant]
     Indication: HYPERTENSION

REACTIONS (2)
  - SWOLLEN TONGUE [None]
  - DYSARTHRIA [None]
